FAERS Safety Report 17118048 (Version 1)
Quarter: 2019Q4

REPORT INFORMATION
  Report Type: Spontaneous
  Country: DE (occurrence: DE)
  Receive Date: 20191205
  Receipt Date: 20191205
  Transmission Date: 20200122
  Serious: Yes (Hospitalization, Other)
  Sender: FDA-Public Use
  Company Number: DE-GALDERMA-DE19063240

PATIENT
  Age: 50 Year
  Sex: Male

DRUGS (2)
  1. DOXYCYCLINE. [Suspect]
     Active Substance: DOXYCYCLINE
     Indication: UPPER RESPIRATORY TRACT INFECTION
     Dosage: UNKNOWN
     Route: 065
     Dates: start: 2000, end: 2000
  2. LEPONEX /CLOZARIL (CLOZAPINE) [Concomitant]
     Indication: SCHIZOPHRENIA
     Route: 048
     Dates: start: 2000, end: 2000

REACTIONS (5)
  - Drug interaction [Recovered/Resolved]
  - Product use in unapproved indication [Recovered/Resolved]
  - Stupor [Recovered/Resolved]
  - Upper respiratory tract infection [Recovered/Resolved]
  - Drug level increased [Recovered/Resolved]

NARRATIVE: CASE EVENT DATE: 2000
